FAERS Safety Report 8411044-7 (Version None)
Quarter: 2012Q2

REPORT INFORMATION
  Report Type: 
  Country: None (occurrence: None)
  Receive Date: 20120605
  Receipt Date: 20120530
  Transmission Date: 20120825
  Serious: No
  Sender: FDA-Public Use
  Company Number: US-PFIZER INC-2012131432

PATIENT
  Sex: Female

DRUGS (2)
  1. LYRICA [Suspect]
     Dosage: 150 MG, UNK
  2. LIPITOR [Suspect]
     Dosage: 20 MG, UNK

REACTIONS (3)
  - PAIN [None]
  - INCORRECT DOSE ADMINISTERED [None]
  - MOBILITY DECREASED [None]
